FAERS Safety Report 24696680 (Version 1)
Quarter: 2024Q4

REPORT INFORMATION
  Report Type: Spontaneous
  Country: GB (occurrence: GB)
  Receive Date: 20241204
  Receipt Date: 20241204
  Transmission Date: 20250115
  Serious: Yes (Other)
  Sender: ELI LILLY AND COMPANY
  Company Number: None

PATIENT
  Sex: Female

DRUGS (1)
  1. MOUNJARO [Suspect]
     Active Substance: TIRZEPATIDE
     Indication: Product used for unknown indication
     Dosage: UNK UNK, UNKNOWN
     Route: 065

REACTIONS (7)
  - Syncope [Unknown]
  - Dehydration [Recovering/Resolving]
  - Decreased appetite [Unknown]
  - Feeding disorder [Unknown]
  - Fluid intake reduced [Unknown]
  - Blood ketone body increased [Unknown]
  - Malaise [Unknown]

NARRATIVE: CASE EVENT DATE: 20241124
